FAERS Safety Report 17445021 (Version 1)
Quarter: 2020Q1

REPORT INFORMATION
  Report Type: Report from Study
  Country: US (occurrence: US)
  Receive Date: 20200221
  Receipt Date: 20200221
  Transmission Date: 20200409
  Serious: Yes (Death)
  Sender: FDA-Public Use
  Company Number: US-ASTRAZENECA-2020SE24743

PATIENT
  Age: 28099 Day
  Sex: Male

DRUGS (16)
  1. DORZOLAMIDE [Concomitant]
     Active Substance: DORZOLAMIDE
  2. RANITIDINE. [Concomitant]
     Active Substance: RANITIDINE
  3. LEVOTHYROXINE. [Concomitant]
     Active Substance: LEVOTHYROXINE
  4. FENOFIBRATE. [Concomitant]
     Active Substance: FENOFIBRATE
  5. VITAMIN C [Concomitant]
     Active Substance: ASCORBIC ACID
  6. GLUCOSAMINE-CHONDROITIN [Concomitant]
     Active Substance: CHONDROITIN SULFATE (BOVINE)\GLUCOSAMINE SULFATE
  7. VITAMIN D [Concomitant]
     Active Substance: VITAMIN D NOS
  8. CALCIUM 600 [Concomitant]
     Active Substance: CALCIUM
  9. BENZONATATE. [Concomitant]
     Active Substance: BENZONATATE
  10. ASPIRIN. [Concomitant]
     Active Substance: ASPIRIN
  11. LOPERAMIDE [Concomitant]
     Active Substance: LOPERAMIDE
  12. SIMVASTATIN. [Concomitant]
     Active Substance: SIMVASTATIN
  13. FLORASTOR [Concomitant]
     Active Substance: SACCHAROMYCES CEREVISIAE
  14. COQ10 [Concomitant]
     Active Substance: UBIDECARENONE
  15. TAGRISSO [Suspect]
     Active Substance: OSIMERTINIB
     Indication: LUNG CARCINOMA CELL TYPE UNSPECIFIED STAGE 0
     Route: 048
  16. METOPROLOL. [Concomitant]
     Active Substance: METOPROLOL

REACTIONS (1)
  - Death [Fatal]

NARRATIVE: CASE EVENT DATE: 20200129
